FAERS Safety Report 6658049-4 (Version None)
Quarter: 2010Q1

REPORT INFORMATION
  Report Type: 
  Country: None (occurrence: None)
  Receive Date: 20100326
  Receipt Date: 20100312
  Transmission Date: 20100710
  Serious: Yes (Hospitalization, Other)
  Sender: FDA-Public Use
  Company Number: 002741

PATIENT
  Sex: Female
  Weight: 57.6068 kg

DRUGS (2)
  1. CIMZIA [Suspect]
     Indication: CROHN'S DISEASE
     Dosage: SUBCUTANEOUS, 400 MG 1X/2 WEEKS SUBCUTANEOUS
     Route: 058
     Dates: start: 20090610, end: 20090708
  2. CIMZIA [Suspect]
     Indication: CROHN'S DISEASE
     Dosage: SUBCUTANEOUS, 400 MG 1X/2 WEEKS SUBCUTANEOUS
     Route: 058
     Dates: start: 20100303

REACTIONS (6)
  - CHEST DISCOMFORT [None]
  - CROHN'S DISEASE [None]
  - HERPES VIRUS INFECTION [None]
  - OROPHARYNGEAL BLISTERING [None]
  - URINARY TRACT INFECTION [None]
  - WEIGHT DECREASED [None]
